FAERS Safety Report 9305247 (Version 2)
Quarter: 2013Q2

REPORT INFORMATION
  Report Type: Spontaneous
  Country: BR (occurrence: None)
  Receive Date: 20130327
  Receipt Date: 20130604
  Transmission Date: 20140414
  Serious: Yes (Hospitalization)
  Sender: FDA-Public Use
  Company Number: SYM-2013-00952

PATIENT
  Age: 54 Year
  Sex: Female

DRUGS (15)
  1. 5-FU(FLUOROURACIL) [Suspect]
     Indication: COLON CANCER METASTATIC
     Dosage: EVERY OTHER WEEK
     Route: 040
     Dates: start: 20121214, end: 20121214
  2. IRINOTECAN [Suspect]
     Indication: COLON CANCER METASTATIC
     Dosage: EVERY OTHER WEEK, INTRAVENOUS (NOT OTHERWISE SPECIFIED)
     Route: 042
     Dates: start: 20121214, end: 20121214
  3. LEUCOVORIN [Suspect]
     Indication: COLON CANCER METASTATIC
     Dosage: EVERY OTHER WEEK, INTRAVENOUS (NOT OTHERWISE SPECIFIED)
     Route: 042
     Dates: start: 20121214, end: 20121214
  4. AFLIBERCEPT [Suspect]
     Indication: COLON CANCER METASTATIC
     Dosage: EVERY OTHER WEEK, INTRAVENOUS (NOT OTHERWISE SPECIFIED)
     Route: 042
     Dates: start: 20121214, end: 20121214
  5. DIMORF [Concomitant]
  6. ANALGESICS (ANALGESICS)(UNKNOWN) [Concomitant]
  7. RIVOTRIL (CLONAZEPAM)(UNKNOWN)(CLONAZEPAM) [Concomitant]
  8. ESOMEPRAZOLE (ESOMEPRAZOLE)(UNKNOWN)(ESOMEPRAZOLE) [Concomitant]
  9. NOVALGINA (METAMIZOLE SODIUM)(UNKNOWN)(METAMIZOLE SODIUM) [Concomitant]
  10. CORTICOSTEROIDS (CORTICOSTEROIDS) [Concomitant]
  11. PANTOPRAZOLE (PANTOPRAZOLE) (PANTOPRAZOLE) [Concomitant]
  12. ANTICHOLINERGICS (ANTICHOLINGERGICS) [Concomitant]
  13. ANTIBIOTICS (ANTIBIOTICS) [Concomitant]
  14. ANTIEPILEPTICS (ANTIEPILEPTICS) [Concomitant]
  15. XYLOCAINE (LIDOCAINE HYDROCHLORIDE) (LIDOCAINE HYDROCHLORIDE) [Concomitant]

REACTIONS (5)
  - Odynophagia [None]
  - Abdominal pain [None]
  - Febrile neutropenia [None]
  - Somnolence [None]
  - Diarrhoea [None]
